FAERS Safety Report 13553054 (Version 1)
Quarter: 2017Q2

REPORT INFORMATION
  Report Type: Spontaneous
  Country: US (occurrence: US)
  Receive Date: 20170517
  Receipt Date: 20170517
  Transmission Date: 20170830
  Serious: No
  Sender: FDA-Public Use
  Company Number: US-PFIZER INC-2017214717

PATIENT
  Sex: Female
  Weight: 67 kg

DRUGS (4)
  1. ENALPRIN [Concomitant]
     Indication: HYPERTENSION
     Dosage: 10 MG, 1X/DAY
  2. LEVOTHYROXINE. [Concomitant]
     Active Substance: LEVOTHYROXINE
     Indication: HYPOTHYROIDISM
     Dosage: 137 UG, 1X/DAY, ALTERNATE 137MCG AND 125MCG, ONCE DAILY
  3. LEVOTHYROXINE. [Concomitant]
     Active Substance: LEVOTHYROXINE
     Dosage: 125 UG, ALTERNATE DAY, ALTERNATE 137MCG AND 125MCG ONCE DAILY
  4. IBUPROFEN. [Suspect]
     Active Substance: IBUPROFEN
     Dosage: UNK

REACTIONS (1)
  - Ulcer [Unknown]
